FAERS Safety Report 24021019 (Version 1)
Quarter: 2024Q2

REPORT INFORMATION
  Report Type: Spontaneous
  Country: US (occurrence: US)
  Receive Date: 20240627
  Receipt Date: 20240627
  Transmission Date: 20240716
  Serious: Yes (Hospitalization, Other)
  Sender: FDA-Public Use
  Company Number: US-GILEAD-2024-0678772

PATIENT
  Age: 75 Year
  Sex: Male

DRUGS (1)
  1. YESCARTA [Suspect]
     Active Substance: AXICABTAGENE CILOLEUCEL
     Indication: Hospitalisation
     Route: 065
     Dates: start: 20240626, end: 20240626

REACTIONS (1)
  - Transfusion reaction [Unknown]

NARRATIVE: CASE EVENT DATE: 20240626
